FAERS Safety Report 15788348 (Version 1)
Quarter: 2019Q1

REPORT INFORMATION
  Report Type: Spontaneous
  Country: US (occurrence: US)
  Receive Date: 20190104
  Receipt Date: 20190104
  Transmission Date: 20190417
  Serious: Yes (Other)
  Sender: FDA-Public Use
  Company Number: US-BAUSCH-BL-2018-036269

PATIENT
  Age: 30 Year
  Sex: Male

DRUGS (2)
  1. TRIFLURIDINE. [Suspect]
     Active Substance: TRIFLURIDINE
     Indication: PERSISTENT CORNEAL EPITHELIAL DEFECT
     Route: 065
  2. TOBRAMYCIN AND DEXAMETHASONE [Suspect]
     Active Substance: DEXAMETHASONE\TOBRAMYCIN
     Indication: PERSISTENT CORNEAL EPITHELIAL DEFECT
     Route: 061

REACTIONS (1)
  - Treatment failure [Unknown]
